FAERS Safety Report 7567939-X (Version None)
Quarter: 2011Q2

REPORT INFORMATION
  Report Type: 
  Country: None (occurrence: None)
  Receive Date: 20110623
  Receipt Date: 20110614
  Transmission Date: 20111010
  Serious: Yes (Life-Threatening, Other)
  Sender: FDA-Public Use
  Company Number: GB-BRISTOL-MYERS SQUIBB COMPANY-15846611

PATIENT
  Age: 46 Year
  Sex: Female

DRUGS (7)
  1. IRBESARTAN [Concomitant]
  2. METFORMIN HCL [Suspect]
     Indication: TYPE 2 DIABETES MELLITUS
     Route: 048
  3. ZOPICLONE [Concomitant]
  4. GLICLAZIDE [Concomitant]
  5. SIMVASTATIN [Concomitant]
  6. FERROUS SULFATE TAB [Concomitant]
  7. FELODIPINE [Concomitant]

REACTIONS (4)
  - LACTIC ACIDOSIS [None]
  - VOMITING [None]
  - BLOOD CREATININE INCREASED [None]
  - DIARRHOEA [None]
